FAERS Safety Report 6734992-2 (Version None)
Quarter: 2010Q2

REPORT INFORMATION
  Report Type: 
  Country: None (occurrence: None)
  Receive Date: 20100521
  Receipt Date: 20100510
  Transmission Date: 20101027
  Serious: Yes (Other)
  Sender: FDA-Public Use
  Company Number: JP-PFIZER INC-2010063491

PATIENT
  Age: 66 Year
  Sex: Female

DRUGS (3)
  1. LIPITOR [Suspect]
     Indication: HYPERLIPIDAEMIA
     Dosage: 10 MG, DAILY
     Route: 048
     Dates: start: 20090714, end: 20100217
  2. CANDESARTAN CILEXETIL [Suspect]
     Dosage: 8 MG, DAILY
     Route: 048
     Dates: start: 20090714, end: 20100508
  3. NU LOTAN [Suspect]
     Dosage: 2.5 MG, DAILY
     Route: 048
     Dates: start: 20090714, end: 20100508

REACTIONS (1)
  - BLOOD POTASSIUM INCREASED [None]
